FAERS Safety Report 5943669-2 (Version None)
Quarter: 2008Q4

REPORT INFORMATION
  Report Type: 
  Country: None (occurrence: None)
  Receive Date: 20081106
  Receipt Date: 20081028
  Transmission Date: 20090506
  Serious: Yes (Other)
  Sender: FDA-Public Use
  Company Number: BR-JNJFOC-20081006950

PATIENT
  Age: 24 Year
  Sex: Male
  Weight: 74 kg

DRUGS (2)
  1. INVEGA [Suspect]
     Route: 048
  2. INVEGA [Suspect]
     Indication: SCHIZOPHRENIA
     Route: 048

REACTIONS (4)
  - ANXIETY [None]
  - INCOHERENT [None]
  - INSOMNIA [None]
  - WRONG TECHNIQUE IN DRUG USAGE PROCESS [None]
